FAERS Safety Report 8903726 (Version 2)
Quarter: 2012Q4

REPORT INFORMATION
  Report Type: 
  Country: FR (occurrence: FR)
  Receive Date: 20121113
  Receipt Date: 20121206
  Transmission Date: 20130627
  Serious: Yes (Death, Other)
  Sender: FDA-Public Use
  Company Number: FR-TEVA-368177ISR

PATIENT
  Age: 72 Year
  Sex: Female

DRUGS (11)
  1. VINCRISTINE [Suspect]
     Indication: BURKITT^S LYMPHOMA
     Dosage: 2 mg as a single dose
     Route: 042
     Dates: start: 20121007, end: 20121007
  2. ELDISINE [Suspect]
     Indication: BURKITT^S LYMPHOMA
     Dosage: 4,55 mg as a single dose
     Route: 042
     Dates: start: 20120924, end: 20120924
  3. ENDOXAN [Suspect]
     Indication: BURKITT^S LYMPHOMA
     Route: 042
     Dates: start: 20120924, end: 20121007
  4. ENDOXAN [Suspect]
     Route: 042
     Dates: start: 20121008, end: 20121008
  5. ENDOXAN [Suspect]
     Route: 042
     Dates: start: 20121009, end: 20121009
  6. MABTHERA [Suspect]
     Indication: BURKITT^S LYMPHOMA
     Dosage: 570mg as single dose
     Route: 042
     Dates: start: 20121006, end: 20121006
  7. METHOTREXATE [Suspect]
     Indication: BURKITT^S LYMPHOMA
     Dosage: 15mg as single dose
     Route: 037
     Dates: start: 20121008, end: 20121008
  8. ADRIBLASTINE [Suspect]
     Indication: BURKITT^S LYMPHOMA
     Dosage: 91mg as single dose
     Route: 042
     Dates: start: 20121008, end: 20121008
  9. CORTANCYL [Concomitant]
     Dosage: 80 Milligram Daily;
     Route: 048
     Dates: start: 20120924, end: 20121007
  10. CORTANCYL [Concomitant]
     Dosage: 91mg as single dose on 08-OCT-2012 and on 09-OCT-2012
     Route: 048
     Dates: start: 20121008, end: 20121009
  11. METHYLPREDNISOLONE MYLAN [Concomitant]
     Dosage: 20 mg as single dose
     Route: 037
     Dates: start: 20121008, end: 20121008

REACTIONS (7)
  - Cerebral haemorrhage [Fatal]
  - Haemorrhagic stroke [Fatal]
  - Bone marrow failure [Fatal]
  - Acinetobacter bacteraemia [Fatal]
  - Endocarditis [Not Recovered/Not Resolved]
  - Coma [Not Recovered/Not Resolved]
  - Mycotic aneurysm [Not Recovered/Not Resolved]
